FAERS Safety Report 5101369-5 (Version None)
Quarter: 2006Q3

REPORT INFORMATION
  Report Type: 
  Country: None (occurrence: None)
  Receive Date: 20060906
  Receipt Date: 20060823
  Transmission Date: 20061208
  Serious: Yes (Hospitalization, Other)
  Sender: FDA-Public Use
  Company Number: 2004071131

PATIENT
  Age: 82 Year
  Sex: Female

DRUGS (14)
  1. ATARAX [Suspect]
     Indication: URTICARIA
     Dosage: ORAL
     Route: 048
  2. ALDACTAZINE (SPIRONOLACTONE, ALTIZIDE) [Suspect]
     Indication: ESSENTIAL HYPERTENSION
     Dosage: ORAL
     Route: 048
  3. MECLIZINE [Suspect]
     Indication: VERTIGO
     Dosage: ORAL
     Route: 048
  4. PREDNISONE TAB [Suspect]
     Indication: DRUG USE FOR UNKNOWN INDICATION
  5. IBUPROFEN [Suspect]
     Indication: DRUG USE FOR UNKNOWN INDICATION
  6. TINSET (OXATOMIDE) [Suspect]
     Indication: URTICARIA
     Dosage: 30 MG, ORAL
     Route: 048
     Dates: start: 20040802
  7. SECALIP (FENOFIBRATE) [Concomitant]
  8. TIORFAN (ACETORPHAN) [Concomitant]
  9. NUTRITIONAL SUPPLEMENT (GENERAL NUTRIENTS) [Concomitant]
  10. ODDIBIL (FUMARIA EXTRACT) [Concomitant]
  11. ETHANOLAMINE ACETYLLEUCINATE (ETHANOLAMINE ACETYLLEUCINATE) [Concomitant]
  12. DOMPERIDONE (DOMPERIDONE) [Concomitant]
  13. ERCEFURYL (NIFUROXAZIDE) [Concomitant]
  14. VOGALENE (METOPIMAZINE) [Concomitant]

REACTIONS (11)
  - ABDOMINAL PAIN UPPER [None]
  - ANOREXIA [None]
  - CHOLESTASIS [None]
  - HEPATITIS [None]
  - HYPERCALCAEMIA [None]
  - HYPOKALAEMIA [None]
  - JAUNDICE [None]
  - NAUSEA [None]
  - OCULAR ICTERUS [None]
  - PRURITUS [None]
  - WEIGHT DECREASED [None]
